FAERS Safety Report 20526454 (Version 1)
Quarter: 2022Q1

REPORT INFORMATION
  Report Type: Spontaneous
  Country: US (occurrence: US)
  Receive Date: 20220228
  Receipt Date: 20220228
  Transmission Date: 20220423
  Serious: Yes (Other)
  Sender: FDA-Public Use
  Company Number: US-ALMIRALL, LLC-2022AQU000082

PATIENT

DRUGS (1)
  1. FLUOROPLEX [Suspect]
     Active Substance: FLUOROURACIL
     Indication: Ocular surface squamous neoplasia
     Dosage: BIWEEKLY CYCLE OF 4 TIMES A DAY FOLLOWED BY A ONE WEEK HOLIDAY

REACTIONS (4)
  - Ulcerative keratitis [Recovered/Resolved]
  - Corneal perforation [Unknown]
  - Noninfective conjunctivitis [Unknown]
  - Off label use [Unknown]
